APPROVED DRUG PRODUCT: DISOPYRAMIDE PHOSPHATE
Active Ingredient: DISOPYRAMIDE PHOSPHATE
Strength: EQ 150MG BASE
Dosage Form/Route: CAPSULE;ORAL
Application: A071191 | Product #001
Applicant: INTERPHARM INC
Approved: Jan 15, 1987 | RLD: No | RS: No | Type: DISCN